FAERS Safety Report 25453885 (Version 1)
Quarter: 2025Q2

REPORT INFORMATION
  Report Type: Spontaneous
  Country: AU (occurrence: AU)
  Receive Date: 20250619
  Receipt Date: 20250619
  Transmission Date: 20250716
  Serious: Yes (Death, Life-Threatening, Hospitalization, Other)
  Sender: Kenvue
  Company Number: AU-ASPEN-AUS2025AU002410

PATIENT

DRUGS (2)
  1. ACETAMINOPHEN [Suspect]
     Active Substance: ACETAMINOPHEN
     Indication: Pain
     Dosage: 1 GRAM, FOUR TIME A DAY (4G DAILY FOR AROUND 16 WEEKS)
     Route: 065
  2. ACETAMINOPHEN [Suspect]
     Active Substance: ACETAMINOPHEN
     Indication: Pyrexia
     Route: 065

REACTIONS (12)
  - Brain injury [Fatal]
  - Overdose [Fatal]
  - Liver injury [Fatal]
  - Acute hepatic failure [Fatal]
  - Immobile [Fatal]
  - Hallucination [Fatal]
  - Pain [Fatal]
  - Tachycardia [Fatal]
  - Abdominal tenderness [Fatal]
  - Fatigue [Fatal]
  - Decreased appetite [Fatal]
  - Abdominal pain [Fatal]
